FAERS Safety Report 5283690-3 (Version None)
Quarter: 2007Q1

REPORT INFORMATION
  Report Type: 
  Country: None (occurrence: None)
  Receive Date: 20070327
  Receipt Date: 20070315
  Transmission Date: 20070707
  Serious: No
  Sender: FDA-Public Use
  Company Number: T200700312

PATIENT
  Age: 42 Year
  Sex: Male

DRUGS (1)
  1. OPTIRAY 300 [Suspect]
     Dosage: SINGLE
     Dates: start: 20070315, end: 20070315

REACTIONS (3)
  - CHEST DISCOMFORT [None]
  - COUGH [None]
  - WHEEZING [None]
